FAERS Safety Report 8688122 (Version 3)
Quarter: 2013Q3

REPORT INFORMATION
  Report Type: Spontaneous
  Country: US (occurrence: US)
  Receive Date: 20120727
  Receipt Date: 20130709
  Transmission Date: 20140515
  Serious: Yes (Death, Hospitalization)
  Sender: FDA-Public Use
  Company Number: US-B.I. PHARMACEUTICALS,INC./RIDGEFIELD-2012-BP-16586BP

PATIENT
  Age: 82 Year
  Sex: Male
  Weight: 65 kg

DRUGS (10)
  1. PRADAXA [Suspect]
     Indication: ATRIAL FIBRILLATION
     Dosage: 300 MG
     Dates: end: 20120708
  2. VIT D [Concomitant]
  3. VYTORIN [Concomitant]
  4. LASIX [Concomitant]
  5. LANTUS [Concomitant]
  6. NOVOLOG [Concomitant]
  7. LISINOPRIL/HCTZ [Concomitant]
  8. OMEGA 3 [Concomitant]
  9. KCI [Concomitant]
  10. OPTIVATE [Concomitant]

REACTIONS (5)
  - Embolic stroke [Fatal]
  - Cerebrovascular accident [Recovered/Resolved]
  - Confusional state [Unknown]
  - Hypercoagulation [Unknown]
  - Weight decreased [Unknown]
